FAERS Safety Report 7344308-9 (Version None)
Quarter: 2011Q1

REPORT INFORMATION
  Report Type: 
  Country: None (occurrence: None)
  Receive Date: 20110310
  Receipt Date: 20101104
  Transmission Date: 20110831
  Serious: No
  Sender: FDA-Public Use
  Company Number: A0890827A

PATIENT
  Age: 45 Year
  Sex: Male

DRUGS (2)
  1. NICOTINE [Suspect]
  2. NICORETTE [Suspect]
     Route: 002

REACTIONS (2)
  - INTENTIONAL DRUG MISUSE [None]
  - EXPIRED DRUG ADMINISTERED [None]
